FAERS Safety Report 12968718 (Version 2)
Quarter: 2016Q4

REPORT INFORMATION
  Report Type: Spontaneous
  Country: US (occurrence: US)
  Receive Date: 20161123
  Receipt Date: 20161201
  Transmission Date: 20170207
  Serious: Yes (Hospitalization)
  Sender: FDA-Public Use
  Company Number: US-DRREDDYS-USA/USA/16/0085016

PATIENT
  Age: 63 Year
  Sex: Female

DRUGS (6)
  1. ACETYLSALICYLIC ACID [Concomitant]
     Active Substance: ASPIRIN
     Indication: PRODUCT USED FOR UNKNOWN INDICATION
     Route: 065
  2. TENOFOVIR [Interacting]
     Active Substance: TENOFOVIR
     Indication: ANTIRETROVIRAL THERAPY
     Route: 065
  3. EMTRICITABINE [Interacting]
     Active Substance: EMTRICITABINE
     Indication: ANTIRETROVIRAL THERAPY
     Route: 065
  4. SULFAMETHOXAZOLE/TRIMETHOPRIM [Concomitant]
     Active Substance: SULFAMETHOXAZOLE\TRIMETHOPRIM
     Indication: PRODUCT USED FOR UNKNOWN INDICATION
     Route: 065
  5. SIMVASTATIN. [Suspect]
     Active Substance: SIMVASTATIN
     Indication: PRODUCT USED FOR UNKNOWN INDICATION
     Route: 065
  6. RILPIVIRINE [Interacting]
     Active Substance: RILPIVIRINE
     Indication: ANTIRETROVIRAL THERAPY
     Route: 065

REACTIONS (3)
  - Dysphagia [Recovering/Resolving]
  - Drug interaction [Recovered/Resolved]
  - Rhabdomyolysis [Recovered/Resolved]
